FAERS Safety Report 13502747 (Version 1)
Quarter: 2017Q2

REPORT INFORMATION
  Report Type: Spontaneous
  Country: JP (occurrence: JP)
  Receive Date: 20170502
  Receipt Date: 20170502
  Transmission Date: 20170830
  Serious: Yes (Other)
  Sender: FDA-Public Use
  Company Number: JP-GUERBET-JP-20150195

PATIENT
  Age: 69 Year
  Sex: Male

DRUGS (2)
  1. EPIRUBICIN [Concomitant]
     Active Substance: EPIRUBICIN
     Indication: REGIONAL CHEMOTHERAPY
     Route: 013
  2. LIPIODOL [Suspect]
     Active Substance: ETHIODIZED OIL
     Indication: REGIONAL CHEMOTHERAPY
     Route: 013

REACTIONS (3)
  - Skin ulcer [Not Recovered/Not Resolved]
  - Extravasation [Unknown]
  - Off label use [Not Recovered/Not Resolved]
